FAERS Safety Report 24462581 (Version 1)
Quarter: 2024Q4

REPORT INFORMATION
  Report Type: Spontaneous
  Country: US (occurrence: None)
  Receive Date: 20241018
  Receipt Date: 20241018
  Transmission Date: 20250115
  Serious: Yes (Other)
  Sender: Public
  Company Number: None

PATIENT
  Age: 50 Year
  Sex: Male

DRUGS (1)
  1. ERLEADA [Suspect]
     Active Substance: APALUTAMIDE
     Dates: start: 20240828, end: 20241004

REACTIONS (2)
  - Diarrhoea [None]
  - Colitis [None]

NARRATIVE: CASE EVENT DATE: 20241018
